FAERS Safety Report 17615657 (Version 1)
Quarter: 2020Q2

REPORT INFORMATION
  Report Type: Other
  Country: CA (occurrence: CA)
  Receive Date: 20200402
  Receipt Date: 20200402
  Transmission Date: 20200713
  Serious: Yes (Other)
  Sender: FDA-Public Use
  Company Number: CA-GLENMARK PHARMACEUTICALS-2020GMK046971

PATIENT

DRUGS (1)
  1. GABAPENTIN. [Suspect]
     Active Substance: GABAPENTIN
     Indication: SEIZURE
     Dosage: 300 MILLIGRAM, TID (3 EVERY 1 DAY)
     Route: 048

REACTIONS (4)
  - Seizure [Unknown]
  - Drug ineffective for unapproved indication [Unknown]
  - Product physical issue [Unknown]
  - Off label use [Unknown]
